FAERS Safety Report 9152457 (Version 1)
Quarter: 2013Q1

REPORT INFORMATION
  Report Type: Spontaneous
  Country: GB (occurrence: GB)
  Receive Date: 20130308
  Receipt Date: 20130308
  Transmission Date: 20140127
  Serious: Yes (Other)
  Sender: FDA-Public Use
  Company Number: GB-ELI_LILLY_AND_COMPANY-GB201303000098

PATIENT
  Age: 54 Year
  Sex: Female

DRUGS (5)
  1. BYDUREON [Suspect]
     Dosage: 2 MG, UNK
     Route: 058
     Dates: start: 20121213
  2. BYETTA [Suspect]
     Dosage: 5 UG, UNK
     Route: 058
     Dates: start: 20120424
  3. GLICLAZIDE [Concomitant]
     Route: 048
  4. METFORMIN [Concomitant]
     Route: 048
  5. SITAGLIPTIN [Concomitant]
     Route: 048

REACTIONS (1)
  - Endometrial cancer [Unknown]
